FAERS Safety Report 8001068-6 (Version None)
Quarter: 2011Q4

REPORT INFORMATION
  Report Type: 
  Country: None (occurrence: None)
  Receive Date: 20111219
  Receipt Date: 20111205
  Transmission Date: 20120403
  Serious: Yes (Other)
  Sender: FDA-Public Use
  Company Number: 2011MA017456

PATIENT
  Age: 31 Year
  Sex: Female

DRUGS (7)
  1. FAMOTIDINE [Suspect]
     Indication: URTICARIA
  2. CETIRIZINE HCL [Suspect]
     Indication: RHINITIS ALLERGIC
  3. HYDROXYZINE [Concomitant]
     Indication: URTICARIA
  4. MONTELUKAST SODIUM [Suspect]
     Indication: ASTHMA
  5. DOXEPIN [Suspect]
     Indication: URTICARIA
  6. DIPHENHYDRAMINE HCL [Suspect]
     Indication: URTICARIA
  7. DEXAMETHASONE [Suspect]
     Indication: URTICARIA

REACTIONS (10)
  - FATIGUE [None]
  - BREAST ADENOMA [None]
  - HYPOTHYROIDISM [None]
  - CONTUSION [None]
  - HYPERTENSION [None]
  - URTICARIA [None]
  - ANGIOEDEMA [None]
  - ARTHRALGIA [None]
  - PYREXIA [None]
  - HEPATIC MASS [None]
